FAERS Safety Report 11453717 (Version 1)
Quarter: 2015Q3

REPORT INFORMATION
  Report Type: Spontaneous
  Country: US (occurrence: US)
  Receive Date: 20150831
  Receipt Date: 20150831
  Transmission Date: 20151125
  Serious: No
  Sender: FDA-Public Use
  Company Number: US-ELI_LILLY_AND_COMPANY-US201001002128

PATIENT
  Sex: Female

DRUGS (1)
  1. CYMBALTA [Suspect]
     Active Substance: DULOXETINE HYDROCHLORIDE
     Dosage: 60 MG, DAILY (1/D)
     Route: 048

REACTIONS (6)
  - Tremor [Unknown]
  - Dyskinesia [Unknown]
  - Sleep talking [Unknown]
  - Dyspnoea [Unknown]
  - Off label use [Not Recovered/Not Resolved]
  - Crying [Unknown]
